FAERS Safety Report 25627136 (Version 3)
Quarter: 2025Q3

REPORT INFORMATION
  Report Type: Spontaneous
  Country: CH (occurrence: CH)
  Receive Date: 20250731
  Receipt Date: 20250918
  Transmission Date: 20251020
  Serious: Yes (Hospitalization, Other)
  Sender: BAYER HEALTHCARE PHARMACEUTICALS INC.
  Company Number: CH-BAYER-2025A101085

PATIENT
  Age: 29 Year
  Sex: Female
  Weight: 57.143 kg

DRUGS (1)
  1. GADOBUTROL [Suspect]
     Active Substance: GADOBUTROL
     Indication: Magnetic resonance cholangiopancreatography

REACTIONS (6)
  - Non-cardiogenic pulmonary oedema [Recovered/Resolved]
  - Pleural effusion [Recovered/Resolved]
  - Bundle branch block right [None]
  - Hypersensitivity [None]
  - Product prescribing issue [None]
  - Product use in unapproved indication [None]
